FAERS Safety Report 11175638 (Version 2)
Quarter: 2015Q2

REPORT INFORMATION
  Report Type: Spontaneous
  Country: JP (occurrence: JP)
  Receive Date: 20150609
  Receipt Date: 20150618
  Transmission Date: 20150821
  Serious: Yes (Other)
  Sender: FDA-Public Use
  Company Number: JP-GLAXOSMITHKLINE-JP2015JPN074992

PATIENT
  Age: 41 Year
  Sex: Male

DRUGS (4)
  1. EPZICOM [Suspect]
     Active Substance: ABACAVIR SULFATE\LAMIVUDINE
     Route: 048
  2. RETROVIR [Suspect]
     Active Substance: ZIDOVUDINE
     Route: 048
  3. AZITHROMYCIN HYDRATE [Concomitant]
     Active Substance: AZITHROMYCIN DIHYDRATE
     Route: 048
  4. ISENTRESS [Concomitant]
     Active Substance: RALTEGRAVIR POTASSIUM

REACTIONS (12)
  - Joint swelling [Unknown]
  - Vitreous floaters [Unknown]
  - Mycobacterium avium complex immune restoration disease [Unknown]
  - Cytomegalovirus chorioretinitis [Unknown]
  - Vision blurred [Unknown]
  - Paresis [Unknown]
  - Retinal tear [Unknown]
  - Pyrexia [Recovering/Resolving]
  - Mass [Unknown]
  - Immune reconstitution inflammatory syndrome [Unknown]
  - Lymphoma [Unknown]
  - Lymphadenopathy mediastinal [Recovering/Resolving]
